FAERS Safety Report 8010734-8 (Version None)
Quarter: 2011Q4

REPORT INFORMATION
  Report Type: 
  Country: None (occurrence: None)
  Receive Date: 20111228
  Receipt Date: 20111221
  Transmission Date: 20120403
  Serious: Yes (Hospitalization, Other)
  Sender: FDA-Public Use
  Company Number: DK-PFIZER INC-2011247513

PATIENT
  Age: 69 Year
  Sex: Male
  Weight: 77 kg

DRUGS (4)
  1. CRIZOTINIB [Interacting]
     Dosage: 200 MG, 2X/DAY
     Route: 048
     Dates: start: 20111014, end: 20111127
  2. CRIZOTINIB [Interacting]
     Dosage: 250 MG, 2X/DAY
     Route: 048
     Dates: start: 20111128
  3. METOPROLOL SUCCINATE [Interacting]
     Indication: ANGIOGRAM
     Dosage: 100 MG, 1X/DAY
     Route: 048
     Dates: start: 20111013, end: 20111013
  4. CRIZOTINIB [Suspect]
     Indication: NON-SMALL CELL LUNG CANCER
     Dosage: 250 MG, 2X/DAY
     Route: 048
     Dates: start: 20110926, end: 20111013

REACTIONS (3)
  - ELECTROCARDIOGRAM QT PROLONGED [None]
  - SINUS BRADYCARDIA [None]
  - DRUG INTERACTION [None]
